FAERS Safety Report 23798821 (Version 1)
Quarter: 2024Q2

REPORT INFORMATION
  Report Type: Spontaneous
  Country: RO (occurrence: RO)
  Receive Date: 20240430
  Receipt Date: 20240430
  Transmission Date: 20240716
  Serious: Yes (Other)
  Sender: FDA-Public Use
  Company Number: RO-TEVA-VS-3188551

PATIENT
  Age: 51 Year
  Sex: Female

DRUGS (5)
  1. ANASTROZOLE [Suspect]
     Active Substance: ANASTROZOLE
     Indication: Invasive breast carcinoma
     Route: 065
     Dates: start: 201810
  2. FULVESTRANT [Suspect]
     Active Substance: FULVESTRANT
     Indication: Invasive breast carcinoma
     Route: 030
     Dates: start: 202310, end: 202402
  3. DENOSUMAB [Suspect]
     Active Substance: DENOSUMAB
     Indication: Invasive breast carcinoma
     Dosage: 120 MG S.C. EVERY 28 DAYS.
     Route: 058
     Dates: start: 202310, end: 202402
  4. PALBOCICLIB [Suspect]
     Active Substance: PALBOCICLIB
     Indication: Invasive breast carcinoma
     Dosage: 125 MG 21 DAYS
     Route: 065
  5. ZOLEDRONIC ACID [Suspect]
     Active Substance: ZOLEDRONIC ACID
     Indication: Invasive breast carcinoma
     Dosage: 4 MG IV AT THREE MONTHS
     Route: 042

REACTIONS (6)
  - Metastases to bone [Unknown]
  - Carbohydrate antigen 15-3 increased [Unknown]
  - Bone pain [Unknown]
  - Lymphadenopathy mediastinal [Unknown]
  - Pulmonary mass [Unknown]
  - Hepatic cancer [Unknown]

NARRATIVE: CASE EVENT DATE: 20231001
